FAERS Safety Report 7106164-3 (Version None)
Quarter: 2010Q4

REPORT INFORMATION
  Report Type: 
  Country: None (occurrence: None)
  Receive Date: 20101116
  Receipt Date: 20101104
  Transmission Date: 20110411
  Serious: Yes (Other)
  Sender: FDA-Public Use
  Company Number: PHFR2010GB04899

PATIENT
  Sex: Female

DRUGS (3)
  1. CLOZARIL [Suspect]
     Indication: SCHIZOPHRENIA
     Dosage: 50 MG, UNK
     Route: 048
     Dates: start: 20100701
  2. SCOPOLAMINE [Concomitant]
     Indication: SALIVARY HYPERSECRETION
     Dosage: 1 PATCH EVERY 3 DAYS
     Route: 062
     Dates: start: 20100901
  3. PROCYCLIDINE HYDROCHLORIDE 2MG TAB [Concomitant]
     Indication: SALIVARY HYPERSECRETION
     Dosage: 10MG
     Route: 048
     Dates: end: 20100801

REACTIONS (4)
  - CONSTIPATION [None]
  - FAECALOMA [None]
  - SALIVARY HYPERSECRETION [None]
  - TACHYCARDIA [None]
